FAERS Safety Report 16927238 (Version 2)
Quarter: 2019Q4

REPORT INFORMATION
  Report Type: Report from Study
  Country: US (occurrence: US)
  Receive Date: 20191016
  Receipt Date: 20191220
  Transmission Date: 20200122
  Serious: Yes (Life-Threatening, Hospitalization)
  Sender: FDA-Public Use
  Company Number: US-GILEAD-2018-0351712

PATIENT
  Age: 58 Year
  Sex: Female
  Weight: 125.4 kg

DRUGS (134)
  1. SEVELAMER [Concomitant]
     Active Substance: SEVELAMER
     Dosage: 800,MG,THREE TIMES DAILY
     Route: 048
     Dates: start: 20180717, end: 20180717
  2. ALLOPURINOL. [Concomitant]
     Active Substance: ALLOPURINOL
     Dosage: 300,MG,DAILY
     Route: 048
     Dates: start: 20180730, end: 20180819
  3. SODIUM CHLORIDE 0.9% [Concomitant]
     Active Substance: SODIUM CHLORIDE
     Dosage: 250,ML,DAILY
     Route: 041
     Dates: start: 20180804, end: 20180804
  4. SODIUM CHLORIDE 0.9% [Concomitant]
     Active Substance: SODIUM CHLORIDE
     Dosage: 100,OTHER,OTHER
     Route: 041
     Dates: start: 20180817, end: 20180819
  5. SODIUM CHLORIDE 0.9% [Concomitant]
     Active Substance: SODIUM CHLORIDE
     Dosage: 10,OTHER,OTHER
     Route: 041
     Dates: start: 20180819, end: 20180819
  6. GRANISETRON [Concomitant]
     Active Substance: GRANISETRON
     Dosage: 1,MG,TWICE DAILY
     Route: 041
     Dates: start: 20180717, end: 20180721
  7. GRANISETRON [Concomitant]
     Active Substance: GRANISETRON
     Dosage: 1,MG,DAILY
     Route: 041
     Dates: start: 20180722, end: 20180724
  8. GRANISETRON [Concomitant]
     Active Substance: GRANISETRON
     Dosage: 1,MG,TWICE DAILY
     Route: 041
     Dates: start: 20180728, end: 20180731
  9. POTASSIUM CHLORIDE. [Concomitant]
     Active Substance: POTASSIUM CHLORIDE
     Dosage: 40,MG,DAILY
     Route: 048
     Dates: start: 20180718, end: 20180718
  10. POTASSIUM CHLORIDE. [Concomitant]
     Active Substance: POTASSIUM CHLORIDE
     Dosage: 20,OTHER,THREE TIMES DAILY
     Route: 041
     Dates: start: 20180810, end: 20180810
  11. POTASSIUM CHLORIDE. [Concomitant]
     Active Substance: POTASSIUM CHLORIDE
     Dosage: 40,MG,DAILY
     Route: 048
     Dates: start: 20180810, end: 20180810
  12. POTASSIUM CHLORIDE. [Concomitant]
     Active Substance: POTASSIUM CHLORIDE
     Dosage: 40,MG,DAILY
     Route: 041
     Dates: start: 20180817, end: 20180817
  13. AZTREONAM. [Concomitant]
     Active Substance: AZTREONAM
     Dosage: 2,G,FOUR TIMES DAILY
     Route: 041
     Dates: start: 20180804, end: 20180807
  14. MAGNESIUM SULFATE. [Concomitant]
     Active Substance: MAGNESIUM SULFATE
     Dosage: 6,G,DAILY
     Route: 041
     Dates: start: 20180722, end: 20180722
  15. POTASSIUM ACETATE. [Concomitant]
     Active Substance: POTASSIUM ACETATE
     Dosage: 20,OTHER,DAILY
     Route: 041
     Dates: start: 20180726, end: 20180726
  16. POTASSIUM ACETATE. [Concomitant]
     Active Substance: POTASSIUM ACETATE
     Dosage: 20,OTHER,DAILY
     Route: 041
     Dates: start: 20180811, end: 20180812
  17. BENZONATATE. [Concomitant]
     Active Substance: BENZONATATE
     Dosage: 100,MG,DAILY
     Route: 048
     Dates: start: 20180725, end: 20180725
  18. FUROSEMIDE. [Concomitant]
     Active Substance: FUROSEMIDE
     Dosage: 40,MG,DAILY
     Route: 041
     Dates: start: 20180802, end: 20180802
  19. MELATONIN [Concomitant]
     Active Substance: MELATONIN
     Dosage: 3,MG,DAILY
     Route: 048
     Dates: start: 20180728, end: 20180728
  20. FENTANYL. [Concomitant]
     Active Substance: FENTANYL
     Dosage: 50,OTHER,OTHER
     Route: 041
     Dates: start: 20180731, end: 20180804
  21. PANTOPRAZOLE [Concomitant]
     Active Substance: PANTOPRAZOLE
     Dosage: 40,MG,DAILY
     Route: 048
     Dates: start: 20180810
  22. LACTULOSE. [Concomitant]
     Active Substance: LACTULOSE
     Dosage: 20,G,TWICE DAILY
     Route: 050
     Dates: start: 20180731, end: 20180802
  23. VITAMINS NOS [Concomitant]
     Active Substance: VITAMINS
     Dosage: 1,OTHER,DAILY
     Route: 048
     Dates: start: 20180811, end: 20180819
  24. AXICABTAGENE CILOLEUCEL [Suspect]
     Active Substance: AXICABTAGENE CILOLEUCEL
     Indication: B-CELL LYMPHOMA
     Dosage: 68 ML, ONCE
     Route: 042
     Dates: start: 20180716, end: 20180716
  25. CYCLOPHOSPHAMIDE. [Suspect]
     Active Substance: CYCLOPHOSPHAMIDE
     Indication: BONE MARROW CONDITIONING REGIMEN
     Dosage: 500 MG/M2, QD
     Route: 042
     Dates: start: 20180711, end: 20180713
  26. LEVOTHYROXINE. [Concomitant]
     Active Substance: LEVOTHYROXINE
     Dosage: 88,UG,DAILY
     Route: 048
     Dates: start: 20150101
  27. LEVOTHYROXINE. [Concomitant]
     Active Substance: LEVOTHYROXINE
     Dosage: 100,UG,DAILY
     Route: 048
     Dates: start: 20180730, end: 20180730
  28. POTASSIUM CHLORIDE. [Concomitant]
     Active Substance: POTASSIUM CHLORIDE
     Dosage: 20,OTHER,TWICE DAILY
     Route: 041
     Dates: start: 20180808, end: 20180808
  29. VANCOMYCIN [Concomitant]
     Active Substance: VANCOMYCIN
     Dosage: 500,MG,TWICE DAILY
     Route: 041
     Dates: start: 20180719, end: 20180721
  30. VANCOMYCIN [Concomitant]
     Active Substance: VANCOMYCIN
     Dosage: 750,MG,TWICE DAILY
     Route: 041
     Dates: start: 20180804, end: 20180805
  31. MAGNESIUM SULFATE. [Concomitant]
     Active Substance: MAGNESIUM SULFATE
     Dosage: 2,G,EVERY OTHER DAY
     Route: 041
     Dates: start: 20180806, end: 20180808
  32. POTASSIUM ACETATE. [Concomitant]
     Active Substance: POTASSIUM ACETATE
     Dosage: 20,OTHER,DAILY
     Route: 041
     Dates: start: 20180721, end: 20180721
  33. POTASSIUM ACETATE. [Concomitant]
     Active Substance: POTASSIUM ACETATE
     Dosage: 60,OTHER,DAILY
     Route: 041
     Dates: start: 20180802, end: 20180802
  34. FOSAPREPITANT [Concomitant]
     Active Substance: FOSAPREPITANT
     Dosage: 150,MG,DAILY
     Route: 041
     Dates: start: 20180722, end: 20180722
  35. MELATONIN [Concomitant]
     Active Substance: MELATONIN
     Dosage: 5,MG,AS NECESSARY
     Route: 048
     Dates: start: 20180810, end: 20180814
  36. CHLORHEXIDINE [Concomitant]
     Active Substance: CHLORHEXIDINE
     Dosage: 10,OTHER,TWICE DAILY
     Route: 048
     Dates: start: 20180729, end: 20180808
  37. PANTOPRAZOLE [Concomitant]
     Active Substance: PANTOPRAZOLE
     Dosage: 40,MG,DAILY
     Route: 048
     Dates: start: 20180809, end: 20180809
  38. SENNOSIDES. [Concomitant]
     Active Substance: SENNOSIDES
     Dosage: 8.8,MG,DAILY
     Route: 048
     Dates: start: 20180804, end: 20180806
  39. METRONIDAZOLE. [Concomitant]
     Active Substance: METRONIDAZOLE
     Dosage: 500,MG,THREE TIMES DAILY
     Route: 048
     Dates: start: 20180813, end: 20180924
  40. AMIKACIN. [Concomitant]
     Active Substance: AMIKACIN
     Dosage: 250,ML,DAILY
     Route: 041
     Dates: start: 20180807, end: 20180815
  41. EUCERIN [PARAFFIN, LIQUID;PETROLATUM;WOOL FAT] [Concomitant]
     Dosage: 1,OTHER,AS NECESSARY
     Route: 061
     Dates: start: 20180812, end: 20180924
  42. LIDOCAINE. [Concomitant]
     Active Substance: LIDOCAINE
     Dosage: 1,OTHER,DAILY
     Route: 061
     Dates: start: 20180812, end: 20180813
  43. MESNA. [Suspect]
     Active Substance: MESNA
     Indication: PROPHYLAXIS
     Dosage: ^500^, QD
     Route: 042
     Dates: start: 20180711, end: 20180713
  44. LORAZEPAM. [Concomitant]
     Active Substance: LORAZEPAM
     Dosage: 2,MG,DAILY
     Route: 041
     Dates: start: 20180728, end: 20180728
  45. CITALOPRAM [Concomitant]
     Active Substance: CITALOPRAM HYDROBROMIDE
     Dosage: 30,MG,DAILY
     Route: 048
     Dates: start: 20180730, end: 20180819
  46. HEPARIN [Concomitant]
     Active Substance: HEPARIN SODIUM
     Dosage: 150,OTHER,DAILY
     Route: 050
     Dates: start: 20180726, end: 20180726
  47. SODIUM CHLORIDE 0.9% [Concomitant]
     Active Substance: SODIUM CHLORIDE
     Dosage: 400,ML,DAILY
     Route: 041
     Dates: start: 20180722, end: 20180722
  48. POTASSIUM CHLORIDE. [Concomitant]
     Active Substance: POTASSIUM CHLORIDE
     Dosage: 20,OTHER,THREE TIMES DAILY
     Route: 041
     Dates: start: 20180803, end: 20180805
  49. POTASSIUM CHLORIDE. [Concomitant]
     Active Substance: POTASSIUM CHLORIDE
     Dosage: 40,MG,DAILY
     Route: 048
     Dates: start: 20180814, end: 20180815
  50. MAGNESIUM SULFATE. [Concomitant]
     Active Substance: MAGNESIUM SULFATE
     Dosage: 4,G,DAILY
     Route: 041
     Dates: start: 20180817, end: 20180817
  51. POTASSIUM ACETATE. [Concomitant]
     Active Substance: POTASSIUM ACETATE
     Dosage: 80,OTHER,DAILY
     Route: 041
     Dates: start: 20180725, end: 20180725
  52. POTASSIUM ACETATE. [Concomitant]
     Active Substance: POTASSIUM ACETATE
     Dosage: 60,OTHER,DAILY
     Route: 041
     Dates: start: 20180808, end: 20180808
  53. PROPOFOL. [Concomitant]
     Active Substance: PROPOFOL
     Dosage: 50,MG,DAILY
     Route: 041
     Dates: start: 20180729, end: 20180729
  54. SUCCINYLCHOLINE [SUXAMETHONIUM] [Concomitant]
     Active Substance: SUCCINYLCHOLINE
     Dosage: 60,MG,DAILY
     Route: 041
     Dates: start: 20180729, end: 20180729
  55. DEXTROSE 5% [Concomitant]
     Active Substance: DEXTROSE
     Dosage: 50,OTHER,OTHER
     Route: 041
     Dates: start: 20180801, end: 20180801
  56. ACETAZOLAMIDE. [Concomitant]
     Active Substance: ACETAZOLAMIDE
     Dosage: 500,MG,DAILY
     Route: 041
     Dates: start: 20180804, end: 20180804
  57. METRONIDAZOLE. [Concomitant]
     Active Substance: METRONIDAZOLE
     Dosage: 500,MG,THREE TIMES DAILY
     Route: 041
     Dates: start: 20180806, end: 20180807
  58. LORAZEPAM. [Concomitant]
     Active Substance: LORAZEPAM
     Dosage: 0.5,MG,DAILY
     Route: 041
     Dates: start: 20180804, end: 20180804
  59. LORAZEPAM. [Concomitant]
     Active Substance: LORAZEPAM
     Dosage: 0.5,MG,DAILY
     Route: 048
     Dates: start: 20180812, end: 20180814
  60. RIVAROXABAN [Concomitant]
     Active Substance: RIVAROXABAN
     Dosage: 15,MG,DAILY
     Route: 048
     Dates: start: 20060101
  61. LEVOTHYROXINE. [Concomitant]
     Active Substance: LEVOTHYROXINE
     Dosage: 100,UG,DAILY
     Route: 048
     Dates: start: 20180716, end: 20180728
  62. CITALOPRAM [Concomitant]
     Active Substance: CITALOPRAM HYDROBROMIDE
     Dosage: 30,MG,DAILY
     Route: 048
     Dates: start: 20180220, end: 20180821
  63. CITALOPRAM [Concomitant]
     Active Substance: CITALOPRAM HYDROBROMIDE
     Dosage: 30,MG,DAILY
     Route: 048
     Dates: start: 20180716, end: 20180728
  64. HEPARIN [Concomitant]
     Active Substance: HEPARIN SODIUM
     Dosage: 19,OTHER,OTHER
     Route: 041
     Dates: start: 20180716, end: 20180726
  65. DIPHENHYDRAMINE. [Concomitant]
     Active Substance: DIPHENHYDRAMINE
     Dosage: 12.5,MG,DAILY
     Route: 041
     Dates: start: 20180716, end: 20180716
  66. RED BLOOD CELLS [Concomitant]
     Active Substance: HUMAN RED BLOOD CELL
     Dosage: 1,OTHER,DAILY
     Route: 041
     Dates: start: 20180719, end: 20180719
  67. SODIUM CHLORIDE 0.9% [Concomitant]
     Active Substance: SODIUM CHLORIDE
     Dosage: 100,OTHER,OTHER
     Route: 041
     Dates: start: 20180716, end: 20180716
  68. SODIUM CHLORIDE 0.9% [Concomitant]
     Active Substance: SODIUM CHLORIDE
     Dosage: 10,OTHER,OTHER
     Route: 041
     Dates: start: 20180723, end: 20180723
  69. MAGNESIUM SULFATE. [Concomitant]
     Active Substance: MAGNESIUM SULFATE
     Dosage: 4,G,DAILY
     Route: 041
     Dates: start: 20180720, end: 20180720
  70. MAGNESIUM SULFATE. [Concomitant]
     Active Substance: MAGNESIUM SULFATE
     Dosage: 4,G,DAILY
     Route: 041
     Dates: start: 20180801, end: 20180805
  71. MAGNESIUM SULFATE. [Concomitant]
     Active Substance: MAGNESIUM SULFATE
     Dosage: 2,G,TWICE DAILY
     Route: 041
     Dates: start: 20180810, end: 20180811
  72. FENTANYL. [Concomitant]
     Active Substance: FENTANYL
     Dosage: 3,OTHER,OTHER
     Route: 041
     Dates: start: 20180729, end: 20180731
  73. FENTANYL. [Concomitant]
     Active Substance: FENTANYL
     Dosage: 25,UG,AS NECESSARY
     Route: 041
     Dates: start: 20180804, end: 20180805
  74. LACTATED RINGERS SOLUTION [Concomitant]
     Active Substance: CALCIUM CHLORIDE\POTASSIUM CHLORIDE\SODIUM CHLORIDE\SODIUM LACTATE
     Dosage: 100,OTHER,DAILY
     Route: 041
     Dates: start: 20180810, end: 20180810
  75. LORAZEPAM. [Concomitant]
     Active Substance: LORAZEPAM
     Dosage: 2,MG,DAILY
     Route: 041
     Dates: start: 20180729, end: 20180729
  76. LORAZEPAM. [Concomitant]
     Active Substance: LORAZEPAM
     Dosage: 0.5,MG,DAILY
     Route: 041
     Dates: start: 20180806, end: 20180806
  77. RIVAROXABAN [Concomitant]
     Active Substance: RIVAROXABAN
     Dosage: 15,MG,DAILY
     Route: 048
     Dates: start: 20180727, end: 20180728
  78. ALLOPURINOL. [Concomitant]
     Active Substance: ALLOPURINOL
     Dosage: 300,MG,DAILY
     Route: 048
     Dates: start: 20180716, end: 20180728
  79. POTASSIUM CHLORIDE. [Concomitant]
     Active Substance: POTASSIUM CHLORIDE
     Dosage: 40,OTHER,DAILY
     Route: 048
     Dates: start: 20180729, end: 20180729
  80. VANCOMYCIN [Concomitant]
     Active Substance: VANCOMYCIN
     Dosage: 750,MG,OTHER
     Route: 041
     Dates: start: 20180721, end: 20180723
  81. VANCOMYCIN [Concomitant]
     Active Substance: VANCOMYCIN
     Dosage: 1,G,TWICE DAILY
     Route: 041
     Dates: start: 20180806, end: 20180807
  82. POTASSIUM ACETATE. [Concomitant]
     Active Substance: POTASSIUM ACETATE
     Dosage: 40,OTHER,DAILY
     Route: 041
     Dates: start: 20180720, end: 20180720
  83. POTASSIUM ACETATE. [Concomitant]
     Active Substance: POTASSIUM ACETATE
     Dosage: 30,OTHER,DAILY
     Route: 041
     Dates: start: 20180809, end: 20180809
  84. METOCLOPRAMIDE. [Concomitant]
     Active Substance: METOCLOPRAMIDE
     Dosage: 5,MG,DAILY
     Route: 041
     Dates: start: 20180722, end: 20180722
  85. PROPOFOL. [Concomitant]
     Active Substance: PROPOFOL
     Dosage: 17.46,OTHER,OTHER
     Route: 041
     Dates: start: 20180729, end: 20180729
  86. SENNA TABS [Concomitant]
     Active Substance: SENNOSIDES A AND B
     Dosage: 10,MG,DAILY
     Route: 048
     Dates: start: 20180730, end: 20180730
  87. PHENYLEPHRINE [Concomitant]
     Active Substance: PHENYLEPHRINE HYDROCHLORIDE
     Dosage: 12,OTHER,OTHER
     Route: 041
     Dates: start: 20180730, end: 20180803
  88. METRONIDAZOLE. [Concomitant]
     Active Substance: METRONIDAZOLE
     Dosage: 500,MG,THREE TIMES DAILY
     Route: 041
     Dates: start: 20180810, end: 20180813
  89. PYRIDOXINE [Concomitant]
     Active Substance: PYRIDOXINE
     Dosage: 25,MG,DAILY
     Route: 048
     Dates: start: 20180811
  90. CYANOCOBALAMIN. [Concomitant]
     Active Substance: CYANOCOBALAMIN
     Dosage: 1000,UG,DAILY
     Route: 048
     Dates: start: 20180811
  91. LORAZEPAM. [Concomitant]
     Active Substance: LORAZEPAM
     Indication: HALLUCINATION
     Dosage: 1,MG,DAILY
     Route: 048
     Dates: start: 20060101
  92. SEVELAMER [Concomitant]
     Active Substance: SEVELAMER
     Dosage: 1600,MG,DAILY
     Route: 048
     Dates: start: 20180716, end: 20180716
  93. RED BLOOD CELLS [Concomitant]
     Active Substance: HUMAN RED BLOOD CELL
     Dosage: 1,OTHER,DAILY
     Route: 041
     Dates: start: 20180716, end: 20180716
  94. SODIUM CHLORIDE 0.9% [Concomitant]
     Active Substance: SODIUM CHLORIDE
     Dosage: 10,OTHER,OTHER
     Route: 041
     Dates: start: 20180817, end: 20180817
  95. POTASSIUM CHLORIDE. [Concomitant]
     Active Substance: POTASSIUM CHLORIDE
     Dosage: 40,OTHER,DAILY
     Route: 048
     Dates: start: 20180802, end: 20180802
  96. ACETAMINOPHEN. [Concomitant]
     Active Substance: ACETAMINOPHEN
     Dosage: 650,MG,FOUR TIMES DAILY
     Route: 048
     Dates: start: 20180805, end: 20180811
  97. MAGNESIUM SULFATE. [Concomitant]
     Active Substance: MAGNESIUM SULFATE
     Dosage: 4,G,EVERY OTHER DAY
     Route: 041
     Dates: start: 20180810, end: 20180814
  98. MAGNESIUM SULFATE. [Concomitant]
     Active Substance: MAGNESIUM SULFATE
     Dosage: 2,G,DAILY
     Route: 041
     Dates: start: 20180812, end: 20180813
  99. POTASSIUM ACETATE. [Concomitant]
     Active Substance: POTASSIUM ACETATE
     Dosage: 60,OTHER,DAILY
     Route: 041
     Dates: start: 20180722, end: 20180722
  100. POTASSIUM ACETATE. [Concomitant]
     Active Substance: POTASSIUM ACETATE
     Dosage: 60,OTHER,DAILY
     Route: 041
     Dates: start: 20180806, end: 20180806
  101. POTASSIUM ACETATE. [Concomitant]
     Active Substance: POTASSIUM ACETATE
     Dosage: 40,OTHER,TWICE DAILY
     Route: 041
     Dates: start: 20180807, end: 20180807
  102. SIMETHICONE (DIMETHICONE) [Concomitant]
     Active Substance: DIMETHICONE
     Dosage: 80,MG,DAILY
     Route: 048
     Dates: start: 20180722, end: 20180723
  103. FUROSEMIDE. [Concomitant]
     Active Substance: FUROSEMIDE
     Dosage: 20,MG,DAILY
     Route: 041
     Dates: start: 20180728, end: 20180729
  104. FUROSEMIDE. [Concomitant]
     Active Substance: FUROSEMIDE
     Dosage: 60,MG,DAILY
     Route: 041
     Dates: start: 20180802, end: 20180805
  105. SENNOSIDES. [Concomitant]
     Active Substance: SENNOSIDES
     Dosage: 8.8,MG,TWICE DAILY
     Route: 048
     Dates: start: 20180731, end: 20180802
  106. BISACODYL. [Concomitant]
     Active Substance: BISACODYL
     Dosage: 10,MG,DAILY
     Route: 054
     Dates: start: 20180731, end: 20180731
  107. DEXTROSE 5% [Concomitant]
     Active Substance: DEXTROSE
     Dosage: 50,OTHER,OTHER
     Route: 041
     Dates: start: 20180806, end: 20180806
  108. AMIKACIN. [Concomitant]
     Active Substance: AMIKACIN
     Dosage: 2,MG,DAILY
     Route: 050
     Dates: start: 20180813, end: 20180813
  109. ERGOCALCIFEROL. [Concomitant]
     Active Substance: ERGOCALCIFEROL
     Dosage: 4000,OTHER,DAILY
     Route: 048
     Dates: start: 20180811
  110. FOLIC ACID. [Concomitant]
     Active Substance: FOLIC ACID
     Dosage: 0.5,MG,DAILY
     Route: 048
     Dates: start: 20180811
  111. CITALOPRAM [Concomitant]
     Active Substance: CITALOPRAM HYDROBROMIDE
     Dosage: 40,MG,DAILY
     Route: 048
     Dates: start: 20180821
  112. HEPARIN [Concomitant]
     Active Substance: HEPARIN SODIUM
     Dosage: 500,OTHER,DAILY
     Route: 050
     Dates: start: 20180819, end: 20180819
  113. RED BLOOD CELLS [Concomitant]
     Active Substance: HUMAN RED BLOOD CELL
     Dosage: 1,OTHER,DAILY
     Route: 041
     Dates: start: 20180813, end: 20180813
  114. ONDANSETRON [Concomitant]
     Active Substance: ONDANSETRON
     Dosage: 8,MG,DAILY
     Route: 041
     Dates: start: 20180717, end: 20180717
  115. AZTREONAM. [Concomitant]
     Active Substance: AZTREONAM
     Dosage: 2,G,FOUR TIMES DAILY
     Route: 041
     Dates: start: 20180719, end: 20180725
  116. ACETAMINOPHEN. [Concomitant]
     Active Substance: ACETAMINOPHEN
     Dosage: 650,MG,AS NECESSARY
     Route: 048
     Dates: start: 20180719, end: 20180727
  117. FILGRASTIM [Concomitant]
     Active Substance: FILGRASTIM
     Dosage: 300,UG,DAILY
     Route: 058
     Dates: start: 20180719, end: 20180723
  118. VANCOMYCIN [Concomitant]
     Active Substance: VANCOMYCIN
     Dosage: 1,G,DAILY
     Route: 041
     Dates: start: 20180804, end: 20180804
  119. CALCIUM CHLORIDE. [Concomitant]
     Active Substance: CALCIUM CHLORIDE
     Dosage: 300,MG,DAILY
     Route: 041
     Dates: start: 20180723, end: 20180723
  120. FUROSEMIDE. [Concomitant]
     Active Substance: FUROSEMIDE
     Dosage: 20,MG,DAILY
     Route: 041
     Dates: start: 20180801, end: 20180802
  121. ENOXAPARIN [Concomitant]
     Active Substance: ENOXAPARIN
     Dosage: 60,MG,TWICE DAILY
     Route: 041
     Dates: start: 20180730, end: 20180806
  122. POLYETHYLENE GLYCOL [Concomitant]
     Active Substance: POLYETHYLENE GLYCOLS
     Dosage: 17,G,AS NECESSARY
     Route: 050
     Dates: start: 20180730, end: 20180806
  123. FLUDARABINE [Suspect]
     Active Substance: FLUDARABINE PHOSPHATE
     Indication: BONE MARROW CONDITIONING REGIMEN
     Dosage: 30 MG/M2, QD
     Route: 042
     Dates: start: 20180711, end: 20180713
  124. LORAZEPAM. [Concomitant]
     Active Substance: LORAZEPAM
     Indication: ANXIETY
     Dosage: 1,MG,DAILY
     Route: 041
     Dates: start: 20180727, end: 20180727
  125. LEVOTHYROXINE. [Concomitant]
     Active Substance: LEVOTHYROXINE
     Dosage: 100,UG,DAILY
     Route: 048
     Dates: start: 20180801, end: 20180819
  126. SEVELAMER [Concomitant]
     Active Substance: SEVELAMER
     Dosage: 800,MG,DAILY
     Route: 048
     Dates: start: 20180718, end: 20180718
  127. POTASSIUM CHLORIDE. [Concomitant]
     Active Substance: POTASSIUM CHLORIDE
     Dosage: 20,OTHER,DAILY
     Route: 048
     Dates: start: 20180811, end: 20180811
  128. FILGRASTIM [Concomitant]
     Active Substance: FILGRASTIM
     Dosage: 300,UG,DAILY
     Route: 058
     Dates: start: 20180819, end: 20180819
  129. MAGNESIUM SULFATE. [Concomitant]
     Active Substance: MAGNESIUM SULFATE
     Dosage: 4,G,DAILY
     Route: 041
     Dates: start: 20180807, end: 20180809
  130. POTASSIUM ACETATE. [Concomitant]
     Active Substance: POTASSIUM ACETATE
     Dosage: 40,OTHER,DAILY
     Route: 041
     Dates: start: 20180812, end: 20180812
  131. GADOBUTROL. [Concomitant]
     Active Substance: GADOBUTROL
     Dosage: 5.5,ML,DAILY
     Route: 041
     Dates: start: 20180728, end: 20180728
  132. PANTOPRAZOLE [Concomitant]
     Active Substance: PANTOPRAZOLE
     Dosage: 40,MG,DAILY
     Route: 048
     Dates: start: 20180729, end: 20180807
  133. FOSPHENYTOIN [Concomitant]
     Active Substance: FOSPHENYTOIN
     Dosage: 1150,MG,DAILY
     Route: 041
     Dates: start: 20180729, end: 20180729
  134. ENOXAPARIN [Concomitant]
     Active Substance: ENOXAPARIN
     Dosage: 50,MG,TWICE DAILY
     Route: 041
     Dates: start: 20180806

REACTIONS (7)
  - CAR T-cell-related encephalopathy syndrome [Recovered/Resolved]
  - Pyrexia [Recovered/Resolved]
  - Cytokine release syndrome [Recovered/Resolved]
  - Hypoxia [Recovered/Resolved]
  - Hypotension [Recovered/Resolved]
  - Tachycardia [Recovered/Resolved]
  - Confusional state [Recovered/Resolved]

NARRATIVE: CASE EVENT DATE: 20180717
